FAERS Safety Report 6186623-0 (Version None)
Quarter: 2009Q2

REPORT INFORMATION
  Report Type: 
  Country: None (occurrence: None)
  Receive Date: 20090512
  Receipt Date: 20090511
  Transmission Date: 20091009
  Serious: Yes (Hospitalization)
  Sender: FDA-Public Use
  Company Number: DE-PFIZER INC-2009175530

PATIENT
  Age: 80 Year

DRUGS (3)
  1. AMPICILLIN AND SULBACTAM [Suspect]
     Indication: SKIN ULCER
     Dosage: 4.5 MG, 1X/DAY
     Route: 042
     Dates: start: 20081204, end: 20081218
  2. TRAMADOL HCL [Suspect]
     Dosage: UNK
     Route: 048
     Dates: start: 20081207, end: 20081207
  3. CLEXANE [Concomitant]
     Indication: THROMBOSIS PROPHYLAXIS
     Dosage: 0.2 ML, 1X/DAY
     Route: 058
     Dates: start: 20081204, end: 20081223

REACTIONS (2)
  - DELIRIUM [None]
  - HALLUCINATION [None]
